FAERS Safety Report 4359508-X (Version None)
Quarter: 2004Q2

REPORT INFORMATION
  Report Type: 
  Country: None (occurrence: None)
  Receive Date: 20040518
  Receipt Date: 20040514
  Transmission Date: 20050107
  Serious: Yes (Death)
  Sender: FDA-Public Use
  Company Number: GB-BRISTOL-MYERS SQUIBB COMPANY-12586749

PATIENT
  Age: 37 Year
  Sex: Male
  Weight: 66 kg

DRUGS (7)
  1. ATAZANAVIR [Suspect]
     Indication: HIV INFECTION
     Route: 048
     Dates: start: 20040127
  2. RITONAVIR [Suspect]
     Indication: HIV INFECTION
     Route: 048
     Dates: start: 20040127, end: 20040426
  3. ASPIRIN [Concomitant]
     Route: 048
     Dates: start: 20040127, end: 20040426
  4. DAPSONE [Concomitant]
     Route: 048
     Dates: start: 20040127, end: 20040426
  5. PYRIMETHAMINE [Concomitant]
     Indication: PROPHYLAXIS
     Route: 048
     Dates: start: 20040127, end: 20040426
  6. LAMIVUDINE [Concomitant]
     Route: 048
     Dates: start: 20040127, end: 20040426
  7. TENOFOVIR DISOPROXIL FUMARATE [Concomitant]
     Route: 048
     Dates: start: 20040127, end: 20040426

REACTIONS (1)
  - BRAIN STEM INFARCTION [None]
